FAERS Safety Report 10883829 (Version 2)
Quarter: 2015Q1

REPORT INFORMATION
  Report Type: Report from Study
  Country: US (occurrence: US)
  Receive Date: 20150304
  Receipt Date: 20150327
  Transmission Date: 20150721
  Serious: No
  Sender: FDA-Public Use
  Company Number: US-AMGEN-USASL2015017929

PATIENT
  Age: 55 Year
  Sex: Female

DRUGS (1)
  1. ENBREL [Suspect]
     Active Substance: ETANERCEPT
     Indication: PSORIATIC ARTHROPATHY
     Dosage: 50 MG, QWK
     Route: 065
     Dates: start: 20150222

REACTIONS (7)
  - Oropharyngeal pain [Not Recovered/Not Resolved]
  - Skin induration [Recovered/Resolved]
  - Rash pruritic [Recovered/Resolved]
  - Hypoaesthesia [Not Recovered/Not Resolved]
  - Skin swelling [Recovered/Resolved]
  - Feeling hot [Recovered/Resolved]
  - Rash [Recovered/Resolved]

NARRATIVE: CASE EVENT DATE: 20150222
